FAERS Safety Report 7508354-4 (Version None)
Quarter: 2011Q2

REPORT INFORMATION
  Report Type: 
  Country: None (occurrence: None)
  Receive Date: 20110527
  Receipt Date: 20110521
  Transmission Date: 20111010
  Serious: No
  Sender: FDA-Public Use
  Company Number: US-PFIZER INC-2011111244

PATIENT
  Sex: Female
  Weight: 58.05 kg

DRUGS (3)
  1. ZOCOR [Concomitant]
     Indication: BLOOD CHOLESTEROL INCREASED
     Dosage: 20 MG, DAILY
     Route: 048
  2. CELEBREX [Concomitant]
     Indication: ARTHRITIS
     Dosage: 200 MG, DAILY
     Route: 048
  3. NEURONTIN [Suspect]
     Indication: NERVE INJURY
     Dosage: 300 MG, 3X/DAY
     Route: 048
     Dates: start: 20100401, end: 20110521

REACTIONS (5)
  - TOOTH EXTRACTION [None]
  - ASTHENIA [None]
  - ERYTHEMA [None]
  - DECREASED APPETITE [None]
  - TREMOR [None]
